FAERS Safety Report 11871460 (Version 1)
Quarter: 2015Q4

REPORT INFORMATION
  Report Type: Spontaneous
  Country: US (occurrence: US)
  Receive Date: 20151228
  Receipt Date: 20151228
  Transmission Date: 20160305
  Serious: Yes (Hospitalization, Other)
  Sender: FDA-Public Use
  Company Number: US-SMITH AND NEPHEW, INC-2015SMT00660

PATIENT
  Sex: Male
  Weight: 158.73 kg

DRUGS (1)
  1. REGRANEX [Suspect]
     Active Substance: BECAPLERMIN
     Indication: WOUND
     Dosage: UNK, 1X/DAY
     Route: 061
     Dates: start: 201511, end: 201511

REACTIONS (4)
  - Foot operation [Unknown]
  - Wound complication [Unknown]
  - Application site infection [Unknown]
  - Off label use [Unknown]

NARRATIVE: CASE EVENT DATE: 2015
